FAERS Safety Report 4617597-9 (Version None)
Quarter: 2005Q1

REPORT INFORMATION
  Report Type: 
  Country: None (occurrence: None)
  Receive Date: 20050322
  Receipt Date: 20050307
  Transmission Date: 20050727
  Serious: Yes (Other)
  Sender: FDA-Public Use
  Company Number: 02-000021

PATIENT
  Age: 22 Year
  Sex: Female
  Weight: 77.1 kg

DRUGS (4)
  1. LOESTRIN (ETHINYLESTRADIOL, NORETHINDRONE ACETATE) TABLET [Suspect]
     Indication: ENDOMETRIOSIS
     Dosage: 1.5 MG/30 MCG, ORAL
     Route: 048
     Dates: start: 19980101
  2. IBUPROFEN [Concomitant]
  3. MULTIVITAMINS (THIAMINE HYDROCHLORIDE, RIBOFLAVIN, RETINOL, PANTHENOL, [Concomitant]
  4. CITALOPRAM HYDROBROMIDE [Concomitant]

REACTIONS (3)
  - CARPAL TUNNEL SYNDROME [None]
  - DEMYELINATION [None]
  - NEURALGIA [None]
